FAERS Safety Report 8919343 (Version 1)
Quarter: 2012Q4

REPORT INFORMATION
  Report Type: 
  Country: US (occurrence: US)
  Receive Date: 20121121
  Receipt Date: 20121121
  Transmission Date: 20130627
  Serious: No
  Sender: FDA-Public Use
  Company Number: US-GLAXOSMITHKLINE-A0994515A

PATIENT
  Age: 62 Year
  Sex: Male

DRUGS (2)
  1. ARZERRA [Suspect]
     Indication: CHRONIC LYMPHOCYTIC LEUKAEMIA
     Route: 042
  2. NO CONCURRENT MEDICATION [Concomitant]

REACTIONS (2)
  - Swelling face [Recovered/Resolved]
  - Pharyngeal oedema [Unknown]
